FAERS Safety Report 17458140 (Version 1)
Quarter: 2020Q1

REPORT INFORMATION
  Report Type: Spontaneous
  Country: US (occurrence: US)
  Receive Date: 20200225
  Receipt Date: 20200225
  Transmission Date: 20200409
  Serious: No
  Sender: FDA-Public Use
  Company Number: US-ALKERMES INC.-ALK-2019-005323

PATIENT
  Age: 53 Year
  Sex: Male

DRUGS (3)
  1. VIVITROL [Suspect]
     Active Substance: NALTREXONE
     Dosage: 380 MG, QMO
     Route: 030
     Dates: start: 20190928, end: 20190928
  2. VIVITROL [Suspect]
     Active Substance: NALTREXONE
     Indication: ALCOHOLISM
     Dosage: 380 MG, QMO
     Route: 030
     Dates: start: 20200115
  3. VIVITROL [Suspect]
     Active Substance: NALTREXONE
     Dosage: 380 MG, QMO
     Route: 030
     Dates: start: 20191015, end: 20191015

REACTIONS (12)
  - Injection site reaction [Not Recovered/Not Resolved]
  - Medication error [Unknown]
  - Pruritus [Unknown]
  - Injection site mass [Not Recovered/Not Resolved]
  - Scratch [Unknown]
  - Product physical consistency issue [Unknown]
  - Needle issue [Unknown]
  - Product dose omission [Not Recovered/Not Resolved]
  - Drug use disorder [Unknown]
  - Inappropriate schedule of product administration [Not Recovered/Not Resolved]
  - Rash [Unknown]
  - Injection site pain [Unknown]

NARRATIVE: CASE EVENT DATE: 2019
